FAERS Safety Report 9818561 (Version 1)
Quarter: 2014Q1

REPORT INFORMATION
  Report Type: Spontaneous
  Country: US (occurrence: US)
  Receive Date: 20140115
  Receipt Date: 20140115
  Transmission Date: 20141002
  Serious: Yes (Other)
  Sender: FDA-Public Use
  Company Number: US-DYAX CORP.-2014DX000001

PATIENT
  Age: 66 Year
  Sex: Female

DRUGS (14)
  1. KALBITOR [Suspect]
     Indication: HEREDITARY ANGIOEDEMA
     Route: 058
     Dates: start: 20131226, end: 20131226
  2. KALBITOR [Suspect]
     Route: 058
     Dates: start: 20131229, end: 20131229
  3. KALBITOR [Suspect]
     Route: 058
     Dates: start: 20131230, end: 20131230
  4. KALBITOR [Suspect]
     Route: 058
     Dates: start: 20140102, end: 20140102
  5. KALBITOR [Suspect]
     Route: 058
     Dates: start: 201111
  6. VICTOZA [Concomitant]
     Indication: DIABETES MELLITUS
  7. METFORMIN [Concomitant]
     Indication: DIABETES MELLITUS
     Route: 048
  8. PREVACID [Concomitant]
     Indication: GASTROOESOPHAGEAL REFLUX DISEASE
     Route: 048
  9. DILTIAZEM [Concomitant]
     Indication: BLOOD PRESSURE ABNORMAL
     Route: 048
  10. HCTZ [Concomitant]
     Indication: BLOOD PRESSURE ABNORMAL
     Route: 048
  11. SINGULAIR [Concomitant]
     Indication: ASTHMA
  12. ZOLOFT [Concomitant]
     Indication: HEREDITARY ANGIOEDEMA
     Route: 048
  13. ZYRTEC [Concomitant]
     Indication: PRODUCT USED FOR UNKNOWN INDICATION
     Route: 048
  14. COMBIVENT [Concomitant]
     Indication: ASTHMA

REACTIONS (4)
  - Pneumonia [Recovered/Resolved]
  - Asthma [Recovered/Resolved]
  - Hereditary angioedema [Recovering/Resolving]
  - Therapeutic response decreased [Unknown]
